FAERS Safety Report 16411516 (Version 1)
Quarter: 2019Q2

REPORT INFORMATION
  Report Type: Spontaneous
  Country: JP (occurrence: JP)
  Receive Date: 20190610
  Receipt Date: 20190610
  Transmission Date: 20190711
  Serious: Yes (Hospitalization)
  Sender: FDA-Public Use
  Company Number: JP-PFIZER INC-2019210893

PATIENT
  Age: 48 Year
  Sex: Female

DRUGS (4)
  1. CELECOX [Suspect]
     Active Substance: CELECOXIB
     Indication: RHEUMATOID ARTHRITIS
     Dosage: UNK, 2X/DAY
     Route: 048
     Dates: start: 20190427, end: 20190521
  2. GASTER [Concomitant]
     Active Substance: FAMOTIDINE
     Indication: PROPHYLAXIS
     Dosage: 1 DF, 2X/DAY
     Route: 048
     Dates: start: 20190427, end: 20190521
  3. UNISIA [Concomitant]
     Active Substance: AMLODIPINE BESYLATE\CANDESARTAN CILEXETIL
     Indication: HYPERTENSION
     Dosage: 1 DF, 1X/DAY
     Route: 048
     Dates: start: 20190521
  4. AZULFIDINE EN-TABS [Suspect]
     Active Substance: SULFASALAZINE
     Indication: RHEUMATOID ARTHRITIS
     Dosage: 500 MG, 2X/DAY
     Route: 048
     Dates: start: 20190427, end: 20190516

REACTIONS (6)
  - Pyrexia [Not Recovered/Not Resolved]
  - White blood cell count decreased [Unknown]
  - Type IV hypersensitivity reaction [Not Recovered/Not Resolved]
  - Lymphadenopathy [Unknown]
  - Urticaria [Unknown]
  - Infectious mononucleosis [Not Recovered/Not Resolved]

NARRATIVE: CASE EVENT DATE: 20190515
